FAERS Safety Report 5127480-0 (Version None)
Quarter: 2006Q4

REPORT INFORMATION
  Report Type: 
  Country: None (occurrence: None)
  Receive Date: 20061016
  Receipt Date: 20061002
  Transmission Date: 20070319
  Serious: Yes (Hospitalization)
  Sender: FDA-Public Use
  Company Number: PHRM2006FR02712

PATIENT
  Age: 86 Year
  Sex: Male
  Weight: 59 kg

DRUGS (6)
  1. COTAREG [Suspect]
     Dosage: 1 DF, QD
     Route: 048
  2. GARDENAL [Suspect]
     Indication: EPILEPSY
     Dosage: 0.5 TAB EVERY 4 DAYS
     Route: 048
  3. HEMI-DAONIL [Suspect]
     Dosage: 1 DF, QD
     Route: 048
  4. ASPIRIN [Suspect]
     Dosage: 75 MG, QD
     Route: 048
  5. TENORDATE [Suspect]
     Dosage: 1 DF, QD
     Route: 048
  6. OMIX [Suspect]
     Dosage: 1 DF, QD
     Route: 048

REACTIONS (6)
  - AGITATION [None]
  - AMNESIA [None]
  - BITE [None]
  - EPILEPSY [None]
  - LOSS OF CONSCIOUSNESS [None]
  - MALAISE [None]
